FAERS Safety Report 7378006-2 (Version None)
Quarter: 2011Q1

REPORT INFORMATION
  Report Type: 
  Country: None (occurrence: None)
  Receive Date: 20110328
  Receipt Date: 20110322
  Transmission Date: 20110831
  Serious: Yes (Other)
  Sender: FDA-Public Use
  Company Number: US-PFIZER INC-2011062537

PATIENT
  Sex: Male
  Weight: 65.76 kg

DRUGS (1)
  1. LYRICA [Suspect]
     Indication: PAIN
     Dosage: 300 MG, 2X/DAY
     Route: 048
     Dates: start: 20080101

REACTIONS (4)
  - PERIPHERAL COLDNESS [None]
  - ARTHROPATHY [None]
  - LIMB DISCOMFORT [None]
  - WHITE BLOOD CELL COUNT INCREASED [None]
